FAERS Safety Report 4866659-X (Version None)
Quarter: 2005Q4

REPORT INFORMATION
  Report Type: 
  Country: None (occurrence: None)
  Receive Date: 20051221
  Receipt Date: 20051205
  Transmission Date: 20060501
  Serious: Yes (Other)
  Sender: FDA-Public Use
  Company Number: 12907

PATIENT
  Age: 79 Year
  Sex: Male

DRUGS (11)
  1. AMIODARONE [Suspect]
     Indication: ATRIAL FIBRILLATION
     Dosage: 200 MG PO
     Route: 048
     Dates: start: 20020101, end: 20051025
  2. LYRICA [Suspect]
     Indication: NEURALGIA
     Dosage: 75 MG BID PO
     Route: 048
     Dates: start: 20051013, end: 20051022
  3. WARFARIN [Concomitant]
  4. CO-DANTHRAMER [Concomitant]
  5. CLOPIDOGREL [Concomitant]
  6. ISMN [Concomitant]
  7. SIMVASTATIN [Concomitant]
  8. FUROSEMIDE [Concomitant]
  9. MORPHINE [Concomitant]
  10. ORAMORPH SR [Concomitant]
  11. ZOMORPH [Concomitant]

REACTIONS (6)
  - ATRIOVENTRICULAR BLOCK COMPLETE [None]
  - BLISTER [None]
  - BRADYCARDIA [None]
  - DRUG INTERACTION [None]
  - RASH ERYTHEMATOUS [None]
  - SKIN OEDEMA [None]
